FAERS Safety Report 19245109 (Version 1)
Quarter: 2021Q2

REPORT INFORMATION
  Report Type: Spontaneous
  Country: SE (occurrence: SE)
  Receive Date: 20210512
  Receipt Date: 20210512
  Transmission Date: 20210717
  Serious: Yes (Hospitalization)
  Sender: FDA-Public Use
  Company Number: SE-TEVA-2021-SE-1909218

PATIENT
  Age: 32 Year
  Sex: Female

DRUGS (9)
  1. FLUANXOL [Suspect]
     Active Substance: FLUPENTIXOL
     Route: 065
  2. OLANZAPINE. [Suspect]
     Active Substance: OLANZAPINE
     Route: 065
  3. CISORDINOL [Suspect]
     Active Substance: ZUCLOPENTHIXOL
     Route: 065
  4. QUETIAPINE. [Suspect]
     Active Substance: QUETIAPINE
     Route: 065
  5. ALIMEMAZINE [Suspect]
     Active Substance: TRIMEPRAZINE
     Route: 065
  6. TRILAFON [Suspect]
     Active Substance: PERPHENAZINE
     Route: 065
  7. INVOKANA [Concomitant]
     Active Substance: CANAGLIFLOZIN
  8. DEPO?PROVERA [Concomitant]
     Active Substance: MEDROXYPROGESTERONE ACETATE
  9. VICTOZA [Concomitant]
     Active Substance: LIRAGLUTIDE

REACTIONS (1)
  - Cerebral venous sinus thrombosis [Recovering/Resolving]

NARRATIVE: CASE EVENT DATE: 20210403
